FAERS Safety Report 25028813 (Version 1)
Quarter: 2025Q1

REPORT INFORMATION
  Report Type: Spontaneous
  Country: CN (occurrence: CN)
  Receive Date: 20250302
  Receipt Date: 20250302
  Transmission Date: 20250408
  Serious: Yes (Hospitalization)
  Sender: CHENGDU SUNCADIA MEDICINE CO., LTD.
  Company Number: CN-Chengdu Suncadia Medicine Co., Ltd.-2172096

PATIENT
  Age: 12 Year
  Sex: Female

DRUGS (3)
  1. TACROLIMUS [Suspect]
     Active Substance: TACROLIMUS
     Indication: Kidney transplant rejection
     Dates: start: 20241201, end: 20250220
  2. MYCOPHENOLATE SODIUM [Suspect]
     Active Substance: MYCOPHENOLATE SODIUM
     Dates: start: 20241201, end: 20250220
  3. METHYLPREDNISOLONE [Suspect]
     Active Substance: METHYLPREDNISOLONE
     Dates: start: 20241201, end: 20250220

REACTIONS (3)
  - Subcutaneous abscess [Recovering/Resolving]
  - Infection [Recovering/Resolving]
  - Sepsis [Recovering/Resolving]

NARRATIVE: CASE EVENT DATE: 20250208
